FAERS Safety Report 19410507 (Version 1)
Quarter: 2021Q2

REPORT INFORMATION
  Report Type: Spontaneous
  Country: US (occurrence: US)
  Receive Date: 20210611
  Receipt Date: 20210611
  Transmission Date: 20210717
  Serious: Yes (Hospitalization)
  Sender: FDA-Public Use
  Company Number: None

PATIENT
  Age: 53 Year
  Sex: Female

DRUGS (12)
  1. XELJANZ XR [Suspect]
     Active Substance: TOFACITINIB CITRATE
     Indication: RHEUMATOID ARTHRITIS
     Route: 048
     Dates: start: 20180724
  2. ATORVASTATIN [Concomitant]
     Active Substance: ATORVASTATIN
  3. MAGNESIUM [Concomitant]
     Active Substance: MAGNESIUM
  4. CARVEDILOL. [Concomitant]
     Active Substance: CARVEDILOL
  5. GABAPENTIN. [Concomitant]
     Active Substance: GABAPENTIN
  6. WELLBUTRN [Concomitant]
  7. EMGALITY [Concomitant]
     Active Substance: GALCANEZUMAB-GNLM
  8. HYDROCHLOT [Concomitant]
  9. VITAMIN D3 [Concomitant]
     Active Substance: CHOLECALCIFEROL
  10. MULTIPLE VITAMIN [Concomitant]
     Active Substance: VITAMINS
  11. ACETAZOLAMID [Concomitant]
     Active Substance: ACETAZOLAMIDE
  12. DIAZEPAM. [Concomitant]
     Active Substance: DIAZEPAM

REACTIONS (1)
  - Surgery [None]

NARRATIVE: CASE EVENT DATE: 20210526
